FAERS Safety Report 6775067-6 (Version None)
Quarter: 2010Q2

REPORT INFORMATION
  Report Type: 
  Country: None (occurrence: None)
  Receive Date: 20100617
  Receipt Date: 20100604
  Transmission Date: 20101027
  Serious: Yes (Other)
  Sender: FDA-Public Use
  Company Number: B0656955A

PATIENT
  Age: 29 Year
  Sex: Male

DRUGS (1)
  1. LAMIVUDINE-HBV [Suspect]
     Dosage: 100MG PER DAY
     Route: 065

REACTIONS (6)
  - ABNORMAL CLOTTING FACTOR [None]
  - ALANINE AMINOTRANSFERASE INCREASED [None]
  - BLOOD BILIRUBIN INCREASED [None]
  - DRUG RESISTANCE [None]
  - JAUNDICE [None]
  - TRANSAMINASES INCREASED [None]
